FAERS Safety Report 8789674 (Version 2)
Quarter: 2012Q4

REPORT INFORMATION
  Report Type: Spontaneous
  Country: US (occurrence: None)
  Receive Date: 20120905
  Receipt Date: 20121010
  Transmission Date: 20130627
  Serious: Yes (Hospitalization, Other)
  Sender: FDA-Public Use
  Company Number: ADR-2012-01611

PATIENT
  Age: 48 Year
  Sex: Female

DRUGS (2)
  1. BACLOFEN [Suspect]
     Indication: SPASTICITY
     Dosage: 88.08 mcg/day
  2. BACLOFEN [Suspect]
     Indication: CEREBRAL PALSY
     Dosage: 88.08 mcg/day

REACTIONS (7)
  - Implant site hypersensitivity [None]
  - Implant site erosion [None]
  - Wound secretion [None]
  - Wound dehiscence [None]
  - Device related infection [None]
  - Device connection issue [None]
  - Device damage [None]
